FAERS Safety Report 12840010 (Version 5)
Quarter: 2017Q1

REPORT INFORMATION
  Report Type: Spontaneous
  Country: US (occurrence: US)
  Receive Date: 20161012
  Receipt Date: 20170127
  Transmission Date: 20170428
  Serious: Yes (Hospitalization, Other)
  Sender: FDA-Public Use
  Company Number: US-PFIZER INC-2016473949

PATIENT
  Age: 65 Year
  Sex: Male
  Weight: 141.52 kg

DRUGS (17)
  1. MECLIZINE [Concomitant]
     Active Substance: MECLIZINE HYDROCHLORIDE
     Route: 048
  2. KADIAN [Concomitant]
     Active Substance: MORPHINE SULFATE
     Dosage: 50 MG, 2X/DAY
     Route: 048
  3. MORPHINE SULFATE. [Suspect]
     Active Substance: MORPHINE SULFATE
     Indication: PAIN IN EXTREMITY
     Dosage: 50 MG, AS NEEDED
     Dates: start: 2012
  4. CARTIA XT [Concomitant]
     Active Substance: DILTIAZEM HYDROCHLORIDE
     Route: 048
  5. MULTIVITAMIN /00097801/ [Concomitant]
     Active Substance: VITAMINS
     Route: 048
  6. LYRICA [Suspect]
     Active Substance: PREGABALIN
     Indication: NEUROPATHY PERIPHERAL
     Dosage: 75 MG, UNK
     Route: 048
  7. LYRICA [Suspect]
     Active Substance: PREGABALIN
     Dosage: 300 MG, 2X/DAY
     Route: 048
     Dates: start: 2009
  8. FOLIC ACID B-6 + B-12 [Concomitant]
     Dosage: B12 FOLIC ACID B6 SOY BEAN EXT 6 MCG-400MCG-2MG-93MG
     Route: 048
  9. KADIAN [Concomitant]
     Active Substance: MORPHINE SULFATE
     Dosage: 30 MG, 2X/DAY
     Route: 048
     Dates: start: 20161121, end: 20161220
  10. BACLOFEN. [Concomitant]
     Active Substance: BACLOFEN
     Dosage: UNK
     Route: 048
  11. LUNESTA [Concomitant]
     Active Substance: ESZOPICLONE
     Indication: INSOMNIA
     Dosage: 3 MG, 1X/DAY
  12. OXYGEN. [Concomitant]
     Active Substance: OXYGEN
     Dosage: 3.5L CONTINUOUS
     Dates: start: 201602
  13. LYRICA [Suspect]
     Active Substance: PREGABALIN
     Indication: PAIN IN EXTREMITY
     Dosage: 300 MG, 2X/DAY
     Route: 048
  14. MORPHINE SULFATE. [Suspect]
     Active Substance: MORPHINE SULFATE
     Indication: PAIN
     Dosage: 50 MG, 2X/DAY
  15. PRAVASTATIN. [Concomitant]
     Active Substance: PRAVASTATIN
     Route: 048
  16. FUROSEMIDE. [Concomitant]
     Active Substance: FUROSEMIDE
     Indication: POLYURIA
     Dosage: UNK
     Dates: start: 201602
  17. METOPROLOL SUCCINATE. [Concomitant]
     Active Substance: METOPROLOL SUCCINATE
     Dosage: UNK
     Route: 048

REACTIONS (19)
  - Blindness [Unknown]
  - Muscle spasms [Unknown]
  - Drug dependence [Unknown]
  - Weight decreased [Unknown]
  - Amnesia [Unknown]
  - Pneumonia [Recovered/Resolved]
  - Peripheral swelling [Unknown]
  - Ataxia [Unknown]
  - Depression [Unknown]
  - Fall [Recovered/Resolved]
  - Constipation [Unknown]
  - Renal impairment [Recovered/Resolved]
  - Hypoacusis [Recovered/Resolved]
  - Disturbance in attention [Unknown]
  - Dyskinesia [Recovered/Resolved]
  - Drug effect incomplete [Not Recovered/Not Resolved]
  - Joint instability [Unknown]
  - Blood potassium decreased [Recovered/Resolved]
  - Asthenia [Unknown]

NARRATIVE: CASE EVENT DATE: 2008
